FAERS Safety Report 11163934 (Version 2)
Quarter: 2015Q3

REPORT INFORMATION
  Report Type: Spontaneous
  Country: US (occurrence: US)
  Receive Date: 20150604
  Receipt Date: 20150701
  Transmission Date: 20151125
  Serious: No
  Sender: FDA-Public Use
  Company Number: US-B.I. PHARMACEUTICALS,INC./RIDGEFIELD-2015-BI-27514BP

PATIENT
  Sex: Female
  Weight: 68 kg

DRUGS (4)
  1. LEXAPRO [Concomitant]
     Active Substance: ESCITALOPRAM OXALATE
     Indication: DEPRESSION
     Dosage: 30 MG
     Route: 048
     Dates: start: 2011
  2. RESTASIS [Concomitant]
     Active Substance: CYCLOSPORINE
     Indication: DRY EYE
     Dosage: STRENGTH: 1 DROP BOTH EYES; DAILY DOSE: 2 DROPS BOTH EYES
     Route: 048
     Dates: start: 2007
  3. LEVOTHYROXINE. [Concomitant]
     Active Substance: LEVOTHYROXINE
     Indication: THYROID NEOPLASM
     Dosage: 1 ANZ
     Route: 048
     Dates: start: 1960
  4. SPIRIVA [Suspect]
     Active Substance: TIOTROPIUM BROMIDE MONOHYDRATE
     Indication: EMPHYSEMA
     Dosage: 18 MCG
     Route: 055
     Dates: start: 2012, end: 201504

REACTIONS (1)
  - Vertigo [Not Recovered/Not Resolved]

NARRATIVE: CASE EVENT DATE: 2012
